FAERS Safety Report 13406602 (Version 1)
Quarter: 2017Q2

REPORT INFORMATION
  Report Type: Spontaneous
  Country: US (occurrence: US)
  Receive Date: 20170405
  Receipt Date: 20170405
  Transmission Date: 20170830
  Serious: No
  Sender: FDA-Public Use
  Company Number: US-SA-2016SA112814

PATIENT
  Age: 4 Year
  Sex: Male

DRUGS (1)
  1. ALLEGRA [Suspect]
     Active Substance: FEXOFENADINE HYDROCHLORIDE
     Indication: VIRAL UPPER RESPIRATORY TRACT INFECTION
     Dosage: DOSE: TWO DOSAGES PER DAY; ONE AT NIGHT DOSE:8 OUNCE
     Route: 048

REACTIONS (2)
  - Drug ineffective [Unknown]
  - Somnolence [Unknown]
